FAERS Safety Report 9102551 (Version 1)
Quarter: 2013Q1

REPORT INFORMATION
  Report Type: Spontaneous
  Country: US (occurrence: US)
  Receive Date: 20130220
  Receipt Date: 20130220
  Transmission Date: 20140127
  Serious: Yes (Hospitalization, Other)
  Sender: FDA-Public Use
  Company Number: US-TEVA-387371USA

PATIENT
  Sex: 0

DRUGS (1)
  1. ACTIQ [Suspect]
     Indication: OFF LABEL USE
     Route: 002

REACTIONS (2)
  - Neoplasm malignant [Unknown]
  - Off label use [Unknown]
